FAERS Safety Report 15241705 (Version 1)
Quarter: 2018Q3

REPORT INFORMATION
  Report Type: Spontaneous
  Country: US (occurrence: US)
  Receive Date: 20180712
  Receipt Date: 20180712
  Transmission Date: 20181010
  Serious: Yes (Hospitalization, Other)
  Sender: FDA-Public Use
  Company Number: None

PATIENT
  Age: 21 Year
  Sex: Female
  Weight: 62.55 kg

DRUGS (8)
  1. LAMOTRIGINE. [Suspect]
     Active Substance: LAMOTRIGINE
     Indication: BIPOLAR DISORDER
     Route: 048
     Dates: start: 20180615, end: 20180709
  2. MIRENA [Concomitant]
     Active Substance: LEVONORGESTREL
     Dates: start: 20180703, end: 20180712
  3. LAMOTRIGINE. [Suspect]
     Active Substance: LAMOTRIGINE
     Indication: DEPRESSION
     Route: 048
     Dates: start: 20180112, end: 20180709
  4. RISPERIDONE. [Concomitant]
     Active Substance: RISPERIDONE
     Dates: start: 20180206, end: 20180506
  5. NEXPLANON [Concomitant]
     Active Substance: ETONOGESTREL
     Dates: start: 20170301, end: 20180703
  6. LAMOTRIGINE. [Suspect]
     Active Substance: LAMOTRIGINE
     Indication: BIPOLAR DISORDER
     Route: 048
     Dates: start: 20180112, end: 20180709
  7. LAMOTRIGINE. [Suspect]
     Active Substance: LAMOTRIGINE
     Indication: DEPRESSION
     Route: 048
     Dates: start: 20180615, end: 20180709
  8. CLONAZEPAM 0.5MG [Concomitant]
     Active Substance: CLONAZEPAM
     Dates: start: 20180206, end: 20180712

REACTIONS (7)
  - Contusion [None]
  - Condition aggravated [None]
  - Iron deficiency anaemia [None]
  - Therapy change [None]
  - Pancytopenia [None]
  - Vaginal haemorrhage [None]
  - Gingival bleeding [None]

NARRATIVE: CASE EVENT DATE: 20180709
